FAERS Safety Report 8291765 (Version 4)
Quarter: 2013Q2

REPORT INFORMATION
  Report Type: Spontaneous
  Country: US (occurrence: None)
  Receive Date: 20111122
  Receipt Date: 20120703
  Transmission Date: 20140414
  Serious: Yes (Other)
  Sender: FDA-Public Use
  Company Number: PHHY2011US29856

PATIENT
  Age: 49 Year
  Sex: Female
  Weight: 53.5 kg

DRUGS (11)
  1. GILENYA [Suspect]
     Indication: RELAPSING-REMITTING MULTIPLE SCLEROSIS
     Dosage: 0.5 MG QD, ORAL, 0.5 MG QOD, ORAL
     Route: 048
     Dates: start: 20110315, end: 20110405
  2. OXYCODONE (OXYCODONE) [Concomitant]
  3. ZANAFLEX (TIZANIDINE HYDROCHLORIDE) [Concomitant]
  4. BACLOFEN (BACLOFEN) [Concomitant]
  5. GABAPENTIN (GABAPENTIN) [Concomitant]
  6. IBUPROFEN (IBUPROFEN) [Concomitant]
  7. PROBIOTICS (MICROORGANISMS W/PROBIOTIC ACTION) (NO INGREDIENTS/SUBSTANCES) [Concomitant]
  8. CYMBALTA (DULOXETINE HYDROCHLORIDE) [Concomitant]
  9. NEURONTIN (GABAPENTIN) [Concomitant]
  10. LORATAB (LORATADINE) [Concomitant]
  11. AVINZA (MORPHINE SULFATE) [Concomitant]

REACTIONS (15)
  - SINUSITIS [None]
  - INCORRECT DOSE ADMINISTERED [None]
  - Leukopenia [None]
  - Confusional state [None]
  - Balance disorder [None]
  - Tremor [None]
  - Red cell distribution width increased [None]
  - Thrombocytopenia [None]
  - Neutrophil percentage increased [None]
  - Lymphocyte percentage decreased [None]
  - Lymphocyte count decreased [None]
  - T-lymphocyte count decreased [None]
  - CD4 lymphocytes decreased [None]
  - Asthenia [None]
  - Inappropriate schedule of drug administration [None]
